FAERS Safety Report 25806907 (Version 1)
Quarter: 2025Q3

REPORT INFORMATION
  Report Type: Spontaneous
  Country: US (occurrence: US)
  Receive Date: 20250916
  Receipt Date: 20250916
  Transmission Date: 20251021
  Serious: No
  Sender: BRAEBURN PHARMACEUTICALS
  Company Number: US-BRAEBURN PHARMACEUTICALS-US-BRA-25-000478

PATIENT
  Age: 40 Year
  Sex: Male

DRUGS (1)
  1. BRIXADI [Suspect]
     Active Substance: BUPRENORPHINE
     Indication: Product used for unknown indication
     Route: 065

REACTIONS (5)
  - Nasal congestion [Unknown]
  - Injection site erythema [Unknown]
  - Injection site pain [Recovered/Resolved]
  - Injection site pruritus [Unknown]
  - Urticaria [Unknown]
